FAERS Safety Report 12250470 (Version 1)
Quarter: 2016Q2

REPORT INFORMATION
  Report Type: Spontaneous
  Country: US (occurrence: US)
  Receive Date: 20160408
  Receipt Date: 20160408
  Transmission Date: 20160815
  Serious: No
  Sender: FDA-Public Use
  Company Number: US-009507513-1604USA000441

PATIENT
  Age: 77 Year
  Sex: Male

DRUGS (9)
  1. BELSOMRA [Suspect]
     Active Substance: SUVOREXANT
     Dosage: CONSUMER TOOK TWO 5 MG TABLETS OF BELSOMRA, QPM
     Route: 048
     Dates: start: 20160329, end: 20160329
  2. BELSOMRA [Suspect]
     Active Substance: SUVOREXANT
     Indication: SLEEP DISORDER
     Dosage: 5 MG, QPM
     Route: 048
     Dates: start: 20160328, end: 20160328
  3. LEVOCETIRIZINE [Concomitant]
     Active Substance: LEVOCETIRIZINE
  4. PRAVASTATIN [Concomitant]
     Active Substance: PRAVASTATIN\PRAVASTATIN SODIUM
  5. BAYER ASPIRIN [Concomitant]
     Active Substance: ASPIRIN
  6. BELSOMRA [Suspect]
     Active Substance: SUVOREXANT
     Dosage: CONSUMER TOOK A TOTAL OF 4 BELSOMRA 5 MG TABLETS, QPM
     Route: 048
     Dates: start: 20160330, end: 20160330
  7. GLIMEPIRIDE. [Concomitant]
     Active Substance: GLIMEPIRIDE
  8. LISINOPRIL (+) HYDROCHLOROTHIAZIDE [Concomitant]
     Active Substance: HYDROCHLOROTHIAZIDE\LISINOPRIL
  9. BELSOMRA [Suspect]
     Active Substance: SUVOREXANT
     Dosage: UNK
     Route: 048
     Dates: start: 20160331

REACTIONS (2)
  - Drug ineffective [Not Recovered/Not Resolved]
  - Overdose [Unknown]

NARRATIVE: CASE EVENT DATE: 20160328
